FAERS Safety Report 14735000 (Version 3)
Quarter: 2018Q2

REPORT INFORMATION
  Report Type: Spontaneous
  Country: CA (occurrence: CA)
  Receive Date: 20180409
  Receipt Date: 20180510
  Transmission Date: 20180711
  Serious: Yes (Hospitalization, Other)
  Sender: FDA-Public Use
  Company Number: CA-CELLTRION INC.-2018CA019036

PATIENT

DRUGS (17)
  1. ENTOCORT [Concomitant]
     Active Substance: BUDESONIDE
     Dosage: 3 MG ONCE A DAY
  2. SILDENAFIL. [Concomitant]
     Active Substance: SILDENAFIL
     Dosage: UNK
  3. OLMESARTAN [Concomitant]
     Active Substance: OLMESARTAN
     Dosage: UNK
  4. METRONIDAZOLE. [Concomitant]
     Active Substance: METRONIDAZOLE
     Dosage: 500 MG
  5. DALTEPARIN                         /01708302/ [Concomitant]
  6. ONDANSETRON [Concomitant]
     Active Substance: ONDANSETRON
  7. INFLECTRA [Suspect]
     Active Substance: INFLIXIMAB-DYYB
     Indication: CROHN^S DISEASE
     Dosage: 400 MG, EVERY 0,2,6 WEEKS THEN EVERY 8 WEEKS
     Route: 042
  8. PREDNISONE. [Concomitant]
     Active Substance: PREDNISONE
     Dosage: 5 MG
  9. CIPROFLOXACIN. [Concomitant]
     Active Substance: CIPROFLOXACIN
     Dosage: 500 MG
     Route: 042
  10. DOCUSATE [Concomitant]
     Active Substance: DOCUSATE
  11. ZOPICLONE [Concomitant]
     Active Substance: ZOPICLONE
  12. MEZAVANT [Concomitant]
     Active Substance: MESALAMINE
     Dosage: 1.2 G, BID
  13. MESALAMINE. [Concomitant]
     Active Substance: MESALAMINE
     Dosage: 2.4 G, BID
  14. OLMESARTAN [Concomitant]
     Active Substance: OLMESARTAN
     Dosage: 40 MG
  15. MELATONIN [Concomitant]
     Active Substance: MELATONIN
  16. MULTIVITAMIN                       /00097801/ [Concomitant]
     Active Substance: VITAMINS
     Dosage: UNK
  17. PEG 3350 [Concomitant]
     Active Substance: POLYETHYLENE GLYCOL 3350

REACTIONS (12)
  - Postoperative adhesion [Unknown]
  - Infection [Recovered/Resolved]
  - Arthralgia [Recovered/Resolved]
  - Abdominal wall abscess [Unknown]
  - Incision site pain [Unknown]
  - Incision site erythema [Unknown]
  - Intestinal obstruction [Unknown]
  - Inguinal hernia [Unknown]
  - Drug ineffective [Unknown]
  - Blood bilirubin increased [Unknown]
  - Abdominal hernia [Unknown]
  - Purpura [Unknown]

NARRATIVE: CASE EVENT DATE: 201707
